FAERS Safety Report 24133306 (Version 1)
Quarter: 2024Q3

REPORT INFORMATION
  Report Type: Spontaneous
  Country: US (occurrence: US)
  Receive Date: 20240724
  Receipt Date: 20240724
  Transmission Date: 20241016
  Serious: No
  Sender: NOVARTIS
  Company Number: US-002147023-NVSC2024US151674

PATIENT
  Sex: Female

DRUGS (2)
  1. OXCARBAZEPINE [Suspect]
     Active Substance: OXCARBAZEPINE
     Indication: Product used for unknown indication
     Dosage: UNK
     Route: 065
     Dates: start: 202401
  2. TRILEPTAL [Suspect]
     Active Substance: OXCARBAZEPINE
     Indication: Multiple sclerosis
     Dosage: 300 MG, BID (2T QAM AND QPM) (2 TABLETS IN THE MORNING AND NIGHT)
     Route: 048

REACTIONS (2)
  - Malaise [Unknown]
  - Drug ineffective [Unknown]
